FAERS Safety Report 5329529-9 (Version None)
Quarter: 2007Q2

REPORT INFORMATION
  Report Type: 
  Country: None (occurrence: None)
  Receive Date: 20070223
  Receipt Date: 20060609
  Transmission Date: 20071010
  Serious: Yes (Life-Threatening, Hospitalization, Other)
  Sender: FDA-Public Use
  Company Number: WAES 0606USA01737

PATIENT
  Age: 73 Year
  Sex: Female
  Weight: 83.9154 kg

DRUGS (7)
  1. ZOCOR [Suspect]
     Indication: BLOOD CHOLESTEROL INCREASED
     Dosage: 80 MG/DAILY/PO
     Route: 048
     Dates: start: 20060418, end: 20060608
  2. ZOCOR [Suspect]
     Indication: HYPERLIPIDAEMIA
     Dosage: 80 MG/DAILY/PO
     Route: 048
     Dates: start: 20060418, end: 20060608
  3. ALTACE [Concomitant]
  4. LEXAPRO [Concomitant]
  5. PLAVIX [Concomitant]
  6. TOPROL-XL [Concomitant]
  7. TRAVATAN [Concomitant]

REACTIONS (1)
  - RHABDOMYOLYSIS [None]
